FAERS Safety Report 13522529 (Version 1)
Quarter: 2017Q2

REPORT INFORMATION
  Report Type: Spontaneous
  Country: PK (occurrence: PK)
  Receive Date: 20170508
  Receipt Date: 20170508
  Transmission Date: 20170830
  Serious: Yes (Death, Other)
  Sender: FDA-Public Use
  Company Number: PK-JUBILANT CADISTA PHARMACEUTICALS-2017JUB00134

PATIENT
  Age: 55 Year
  Sex: Female

DRUGS (4)
  1. PREMIXED INSULIN 70/30 [Concomitant]
     Route: 065
  2. CARBAMAZEPINE. [Suspect]
     Active Substance: CARBAMAZEPINE
     Indication: PERIPHERAL SENSORY NEUROPATHY
     Dosage: 100 MG, 2X/DAY
     Route: 065
  3. LISINOPRIL. [Concomitant]
     Active Substance: LISINOPRIL
     Dosage: 10 UNK, UNK
     Route: 065
  4. CLOPIDOGREL [Concomitant]
     Active Substance: CLOPIDOGREL BISULFATE
     Dosage: 75 MG, UNK
     Route: 065

REACTIONS (4)
  - Multiple organ dysfunction syndrome [Fatal]
  - Peripheral ischaemia [Unknown]
  - Toxic epidermal necrolysis [Fatal]
  - Shock [Fatal]
